FAERS Safety Report 8774845 (Version 1)
Quarter: 2012Q4

REPORT INFORMATION
  Report Type: 
  Country: JP (occurrence: JP)
  Receive Date: 20120910
  Receipt Date: 20120910
  Transmission Date: 20130627
  Serious: Yes (Other)
  Sender: FDA-Public Use
  Company Number: JP-ROCHE-1112058

PATIENT
  Age: 63 Year
  Sex: Male

DRUGS (1)
  1. CELLCEPT [Suspect]
     Indication: PROPHYLAXIS AGAINST GRAFT VERSUS HOST DISEASE
     Dosage: Dosage is uncertain.
     Route: 048

REACTIONS (2)
  - Pancreatitis [Unknown]
  - Disseminated intravascular coagulation [Unknown]
